FAERS Safety Report 17402288 (Version 1)
Quarter: 2020Q1

REPORT INFORMATION
  Report Type: Spontaneous
  Country: US (occurrence: US)
  Receive Date: 20200210
  Receipt Date: 20200210
  Transmission Date: 20200409
  Serious: Yes (Life-Threatening, Hospitalization, Disabling)
  Sender: FDA-Public Use
  Company Number: None

PATIENT
  Age: 72 Year
  Sex: Female
  Weight: 115.65 kg

DRUGS (9)
  1. LANTUS [Concomitant]
     Active Substance: INSULIN GLARGINE
  2. ASPIRIN 81 MG [Concomitant]
     Active Substance: ASPIRIN
  3. PLAQUENIL [Concomitant]
     Active Substance: HYDROXYCHLOROQUINE SULFATE
  4. HYZARR 50 MG [Concomitant]
  5. TRADJENTA [Suspect]
     Active Substance: LINAGLIPTIN
     Indication: GLYCOSYLATED HAEMOGLOBIN INCREASED
     Dosage: ?          QUANTITY:90 TABLET(S);?
     Route: 048
  6. OMEPRAZOLE 40 MG [Concomitant]
     Active Substance: OMEPRAZOLE
  7. LOSARTAN. [Concomitant]
     Active Substance: LOSARTAN
  8. NARCO [Concomitant]
  9. HCTZ 12.5MG CAPS [Concomitant]
     Active Substance: HYDROCHLOROTHIAZIDE

REACTIONS (9)
  - Loss of personal independence in daily activities [None]
  - Pain [None]
  - Retching [None]
  - Fall [None]
  - Back pain [None]
  - Vomiting [None]
  - Abdominal pain upper [None]
  - Feeding disorder [None]
  - Pancreatitis [None]
